FAERS Safety Report 21718479 (Version 1)
Quarter: 2022Q4

REPORT INFORMATION
  Report Type: Spontaneous
  Country: HR (occurrence: HR)
  Receive Date: 20221212
  Receipt Date: 20221212
  Transmission Date: 20230113
  Serious: Yes (Death, Other)
  Sender: FDA-Public Use
  Company Number: HR-STRIDES ARCOLAB LIMITED-2022SP016561

PATIENT
  Age: 54 Year
  Sex: Male

DRUGS (2)
  1. MYCOPHENOLATE MOFETIL [Suspect]
     Active Substance: MYCOPHENOLATE MOFETIL
     Indication: Renal transplant
     Dosage: UNK
     Route: 065
  2. CYCLOSPORINE [Suspect]
     Active Substance: CYCLOSPORINE
     Indication: Renal transplant
     Dosage: UNK
     Route: 065

REACTIONS (7)
  - Focal segmental glomerulosclerosis [Unknown]
  - Acinetobacter sepsis [Fatal]
  - Renal injury [Unknown]
  - COVID-19 pneumonia [Recovered/Resolved]
  - Renal tubular injury [Unknown]
  - Chronic hepatitis B [Unknown]
  - Delayed graft function [Unknown]
